FAERS Safety Report 6679262-6 (Version None)
Quarter: 2010Q2

REPORT INFORMATION
  Report Type: 
  Country: None (occurrence: None)
  Receive Date: 20100413
  Receipt Date: 20091112
  Transmission Date: 20101027
  Serious: Yes (Other)
  Sender: FDA-Public Use
  Company Number: IN-PFIZER INC-2010045248

PATIENT
  Age: 42 Year
  Sex: Female

DRUGS (2)
  1. ATARAX [Suspect]
     Indication: URTICARIA
     Dosage: 10 MG, 2X/DAY
     Route: 048
     Dates: start: 20091111, end: 20091112
  2. RANTAC [Concomitant]
     Dosage: 150 MG, 2X/DAY
     Route: 048
     Dates: start: 20091111, end: 20091112

REACTIONS (2)
  - DRUG ERUPTION [None]
  - HYPERSENSITIVITY [None]
